FAERS Safety Report 14380319 (Version 2)
Quarter: 2018Q1

REPORT INFORMATION
  Report Type: Report from Study
  Country: None (occurrence: US)
  Receive Date: 20180112
  Receipt Date: 20180207
  Transmission Date: 20180509
  Serious: Yes (Other)
  Sender: FDA-Public Use
  Company Number: US-ABBVIE-18K-163-2218050-00

PATIENT
  Sex: Female
  Weight: 62.2 kg

DRUGS (1)
  1. HUMIRA [Suspect]
     Active Substance: ADALIMUMAB
     Indication: COLITIS ULCERATIVE
     Route: 058
     Dates: start: 20161227

REACTIONS (5)
  - Post procedural discharge [Recovering/Resolving]
  - Constipation [Recovered/Resolved]
  - Vulvovaginal injury [Unknown]
  - Postoperative wound infection [Recovering/Resolving]
  - Hot flush [Unknown]
